FAERS Safety Report 4392288-0 (Version None)
Quarter: 2004Q3

REPORT INFORMATION
  Report Type: 
  Country: None (occurrence: None)
  Receive Date: 20040702
  Receipt Date: 20040621
  Transmission Date: 20050211
  Serious: Yes (Other)
  Sender: FDA-Public Use
  Company Number: 2004028413

PATIENT
  Age: 74 Year
  Sex: Female
  Weight: 53.5244 kg

DRUGS (10)
  1. NORVASC [Suspect]
     Indication: HYPERTENSION
     Dosage: 5 MG 1 IN 1 D, ORAL    10 YEARS AGO
     Route: 048
  2. LIPITOR [Suspect]
     Indication: ILL-DEFINED DISORDER
  3. LATANOPROST [Concomitant]
  4. VITAMINS (VITAMINS) [Concomitant]
  5. MINERALS NOS (MINERALS NOS) [Concomitant]
  6. TRIAMCINOLONE ACETONIDE [Concomitant]
  7. ARTHROTEC [Concomitant]
  8. RISEDRONATE SODIUM (RISEDRONATE SODIUM) [Concomitant]
  9. ZOLPIDEM TARTRATE [Concomitant]
  10. TERIPARATIDE (TERIPARATIDE) [Concomitant]

REACTIONS (11)
  - CATARACT OPERATION [None]
  - CHROMATURIA [None]
  - DIZZINESS [None]
  - DRUG INEFFECTIVE [None]
  - FATIGUE [None]
  - MUSCLE CRAMP [None]
  - MUSCULAR WEAKNESS [None]
  - MYALGIA [None]
  - OSTEOPOROSIS [None]
  - PNEUMONIA [None]
  - TREATMENT NONCOMPLIANCE [None]
